FAERS Safety Report 23408367 (Version 2)
Quarter: 2024Q3

REPORT INFORMATION
  Report Type: Spontaneous
  Country: CA (occurrence: CA)
  Receive Date: 20240117
  Receipt Date: 20240702
  Transmission Date: 20241017
  Serious: Yes (Other)
  Sender: CELLTRION
  Company Number: CA-CELLTRION INC.-2024CA000977

PATIENT

DRUGS (6)
  1. INFLECTRA [Suspect]
     Active Substance: INFLIXIMAB-DYYB
     Indication: Crohn^s disease
     Dosage: 400 MG WEEKS 0,2,6 THEN EVERY 8 WEEKS
     Route: 042
     Dates: start: 20210916
  2. INFLECTRA [Suspect]
     Active Substance: INFLIXIMAB-DYYB
     Dosage: 400 MG WEEKS 0,2,6 THEN EVERY 8 WEEKS
     Route: 042
     Dates: start: 20231115
  3. INFLECTRA [Suspect]
     Active Substance: INFLIXIMAB-DYYB
     Dosage: 400 MG WEEKS 0,2,6 THEN EVERY 8 WEEKS
     Route: 042
     Dates: start: 20240109
  4. INFLECTRA [Suspect]
     Active Substance: INFLIXIMAB-DYYB
     Dosage: 400 MG WEEKS 0,2,6 THEN EVERY 8 WEEKS
     Route: 042
     Dates: start: 20240430
  5. INFLECTRA [Suspect]
     Active Substance: INFLIXIMAB-DYYB
     Dosage: 400 MG, 8 WEEKS (WEEKS 0,2,6 THEN EVERY 8 WEEKS)
     Route: 042
     Dates: start: 20240625
  6. PREDNISONE [Concomitant]
     Active Substance: PREDNISONE
     Dosage: 1 DF, DOSING INFORMATION NOT AVAILABLE - UNKNOWN IF ONGOING OR DISCONTINUED
     Route: 065
     Dates: start: 20210826

REACTIONS (2)
  - Retinal detachment [Recovering/Resolving]
  - Skin exfoliation [Recovering/Resolving]

NARRATIVE: CASE EVENT DATE: 20231101
